FAERS Safety Report 5845980-2 (Version None)
Quarter: 2008Q3

REPORT INFORMATION
  Report Type: 
  Country: None (occurrence: None)
  Receive Date: 20080814
  Receipt Date: 20080805
  Transmission Date: 20090109
  Serious: Yes (Other)
  Sender: FDA-Public Use
  Company Number: US-PFIZER INC-2008042997

PATIENT
  Sex: Female

DRUGS (18)
  1. AZITHROMYCIN [Suspect]
     Indication: LUNG DISORDER
     Dates: start: 20080511, end: 20080515
  2. WELLBUTRIN [Interacting]
  3. BUSPAR [Interacting]
  4. FLEXERIL [Interacting]
  5. SOMA [Concomitant]
  6. HYDROCODONE BITARTRATE [Concomitant]
  7. FENTANYL-25 [Concomitant]
  8. LIDODERM [Concomitant]
  9. DIAMOX SRC [Concomitant]
  10. HYDROCHLOROTHIAZIDE [Concomitant]
  11. IMDUR [Concomitant]
  12. DIAZEPAM [Concomitant]
  13. ACETYLSALICYLIC ACID SRT [Concomitant]
  14. LISINOPRIL [Concomitant]
  15. ARMOUR THYROID [Concomitant]
  16. HERBAL PREPARATION [Concomitant]
  17. AMBIEN [Concomitant]
  18. GABITRIL [Concomitant]

REACTIONS (7)
  - ABNORMAL BEHAVIOUR [None]
  - CARDIAC DISORDER [None]
  - CHEST PAIN [None]
  - DEAFNESS [None]
  - DRUG INTERACTION [None]
  - FEELING ABNORMAL [None]
  - VIOLENCE-RELATED SYMPTOM [None]
